FAERS Safety Report 6899883-5 (Version None)
Quarter: 2010Q3

REPORT INFORMATION
  Report Type: 
  Country: None (occurrence: None)
  Receive Date: 20100803
  Receipt Date: 20100721
  Transmission Date: 20110219
  Serious: Yes (Life-Threatening, Hospitalization)
  Sender: FDA-Public Use
  Company Number: DK-ASTRAZENECA-2010SE35682

PATIENT
  Age: 274 Month
  Sex: Male
  Weight: 71.5 kg

DRUGS (2)
  1. SEROQUEL [Suspect]
     Route: 048
     Dates: start: 20020628, end: 20020711
  2. ZELDOX [Interacting]
     Route: 048
     Dates: start: 20020708, end: 20020711

REACTIONS (2)
  - DRUG INTERACTION [None]
  - DYSTONIA [None]
